FAERS Safety Report 20029478 (Version 1)
Quarter: 2021Q4

REPORT INFORMATION
  Report Type: Spontaneous
  Country: SE (occurrence: SE)
  Receive Date: 20211103
  Receipt Date: 20211103
  Transmission Date: 20220303
  Serious: Yes (Hospitalization)
  Sender: FDA-Public Use
  Company Number: None

PATIENT
  Age: 73 Year
  Sex: Male

DRUGS (9)
  1. METHOTREXATE [Suspect]
     Active Substance: METHOTREXATE
     Indication: Rheumatoid arthritis
     Dates: end: 202110
  2. WARFARIN SODIUM [Concomitant]
     Active Substance: WARFARIN SODIUM
  3. ACETAMINOPHEN [Concomitant]
     Active Substance: ACETAMINOPHEN
  4. SIMVASTATIN [Concomitant]
     Active Substance: SIMVASTATIN
  5. ZOPICLONE [Concomitant]
     Active Substance: ZOPICLONE
  6. PREDNISOLONE [Concomitant]
     Active Substance: PREDNISOLONE
  7. folsyra [Concomitant]
  8. OMEPRAZOLE [Concomitant]
     Active Substance: OMEPRAZOLE
  9. DIGOXIN [Concomitant]
     Active Substance: DIGOXIN

REACTIONS (1)
  - Anaemia macrocytic [Unknown]

NARRATIVE: CASE EVENT DATE: 20211001
